FAERS Safety Report 16327962 (Version 3)
Quarter: 2022Q1

REPORT INFORMATION
  Report Type: Spontaneous
  Country: CA (occurrence: CA)
  Receive Date: 20190518
  Receipt Date: 20220303
  Transmission Date: 20220423
  Serious: Yes (Hospitalization, Other)
  Sender: FDA-Public Use
  Company Number: CA-AUROBINDO-AUR-APL-2019-027634

PATIENT
  Age: 49 Year
  Sex: Female

DRUGS (4)
  1. ESCITALOPRAM [Suspect]
     Active Substance: ESCITALOPRAM OXALATE
     Indication: Panic disorder
     Dosage: 30 MILLIGRAM
     Route: 048
  2. AMITRIPTYLINE [Suspect]
     Active Substance: AMITRIPTYLINE
     Indication: Panic disorder
     Dosage: 20 MILLIGRAM, ONCE A DAY
     Route: 048
  3. BUSPIRONE HYDROCHLORIDE [Suspect]
     Active Substance: BUSPIRONE HYDROCHLORIDE
     Indication: Panic disorder
     Dosage: 5 MILLIGRAM, ONCE A DAY
     Route: 048
  4. ZYPREXA [Suspect]
     Active Substance: OLANZAPINE
     Indication: Panic disorder
     Dosage: 2.5 MILLIGRAM, ONCE A DAY
     Route: 048

REACTIONS (4)
  - Panic disorder [Not Recovered/Not Resolved]
  - Aptyalism [Not Recovered/Not Resolved]
  - Drug ineffective [Not Recovered/Not Resolved]
  - Overdose [Not Recovered/Not Resolved]
